FAERS Safety Report 13577060 (Version 2)
Quarter: 2017Q2

REPORT INFORMATION
  Report Type: Spontaneous
  Country: MA (occurrence: MA)
  Receive Date: 20170524
  Receipt Date: 20170531
  Transmission Date: 20170830
  Serious: Yes (Other)
  Sender: FDA-Public Use
  Company Number: MA-PFIZER INC-2017223486

PATIENT
  Age: 75 Year
  Sex: Female

DRUGS (1)
  1. ANZATAX [Suspect]
     Active Substance: PACLITAXEL
     Indication: BREAST CANCER
     Dosage: 120 MG, CYCLIC ( 2 CURES)

REACTIONS (1)
  - Toxic epidermal necrolysis [Unknown]
